FAERS Safety Report 6029967-5 (Version None)
Quarter: 2009Q1

REPORT INFORMATION
  Report Type: 
  Country: None (occurrence: None)
  Receive Date: 20090107
  Receipt Date: 20081229
  Transmission Date: 20090719
  Serious: Yes (Death, Congenital Anomaly)
  Sender: FDA-Public Use
  Company Number: B0502027A

PATIENT
  Sex: Male
  Weight: 0.3 kg

DRUGS (2)
  1. MALARONE [Suspect]
     Indication: DRUG USE FOR UNKNOWN INDICATION
     Dates: start: 20070412, end: 20070427
  2. FOLIC ACID [Concomitant]
     Indication: PROPHYLAXIS
     Dates: start: 20070502, end: 20070613

REACTIONS (3)
  - ANENCEPHALY [None]
  - DEATH [None]
  - DRUG EXPOSURE DURING PREGNANCY [None]
